FAERS Safety Report 24062087 (Version 1)
Quarter: 2024Q3

REPORT INFORMATION
  Report Type: Spontaneous
  Country: US (occurrence: US)
  Receive Date: 20240708
  Receipt Date: 20240708
  Transmission Date: 20241016
  Serious: No
  Sender: BRACCO
  Company Number: US-BRACCO-2024US03312

PATIENT
  Age: 32 Year
  Sex: Male

DRUGS (1)
  1. VUEWAY [Suspect]
     Active Substance: GADOPICLENOL
     Indication: Magnetic resonance imaging spinal
     Dosage: 7 ML, SINGLE
     Route: 042
     Dates: start: 20240604, end: 20240604

REACTIONS (2)
  - Nausea [Recovered/Resolved]
  - Vomiting [Recovered/Resolved]

NARRATIVE: CASE EVENT DATE: 20240604
